FAERS Safety Report 23848789 (Version 4)
Quarter: 2025Q1

REPORT INFORMATION
  Report Type: Report from Study
  Country: US (occurrence: US)
  Receive Date: 20240513
  Receipt Date: 20250228
  Transmission Date: 20250409
  Serious: Yes (Other)
  Sender: TAKEDA
  Company Number: US-TAKEDA-2021TUS050813

PATIENT
  Sex: Female
  Weight: 29 kg

DRUGS (11)
  1. HUMAN IMMUNOGLOBULIN G\HYALURONIDASE RECOMBINANT HUMAN [Suspect]
     Active Substance: HUMAN IMMUNOGLOBULIN G\HYALURONIDASE (HUMAN RECOMBINANT)
     Indication: Congenital hypogammaglobulinaemia
     Dosage: 15 GRAM, Q4WEEKS
     Dates: start: 20210713
  2. HUMAN IMMUNOGLOBULIN G\HYALURONIDASE RECOMBINANT HUMAN [Suspect]
     Active Substance: HUMAN IMMUNOGLOBULIN G\HYALURONIDASE (HUMAN RECOMBINANT)
     Dosage: 20 GRAM, Q4WEEKS
  3. ACETAMINOPHEN [Concomitant]
     Active Substance: ACETAMINOPHEN
  4. SODIUM CHLORIDE [Concomitant]
     Active Substance: SODIUM CHLORIDE
  5. TYLENOL [Concomitant]
     Active Substance: ACETAMINOPHEN
  6. MIRALAX [Concomitant]
     Active Substance: POLYETHYLENE GLYCOL 3350
  7. ALBUTEROL SULFATE [Concomitant]
     Active Substance: ALBUTEROL SULFATE
  8. LIDOCAINE [Concomitant]
     Active Substance: LIDOCAINE
  9. DIPHENHYDRAMINE [Concomitant]
     Active Substance: DIPHENHYDRAMINE
  10. SENNA [Concomitant]
     Active Substance: SENNOSIDES
  11. EPINEPHRINE [Concomitant]
     Active Substance: EPINEPHRINE

REACTIONS (12)
  - Pneumonia [Unknown]
  - Respiratory syncytial virus infection [Unknown]
  - Nasopharyngitis [Unknown]
  - Influenza [Unknown]
  - Sinusitis [Unknown]
  - Bronchitis [Unknown]
  - Illness [Unknown]
  - Infusion related reaction [Unknown]
  - Inappropriate schedule of product administration [Unknown]
  - Product dose omission issue [Unknown]
  - Malaise [Unknown]
  - Pyrexia [Unknown]
